FAERS Safety Report 9972055 (Version 1)
Quarter: 2014Q1

REPORT INFORMATION
  Report Type: Spontaneous
  Country: US (occurrence: None)
  Receive Date: 20140305
  Receipt Date: 20140305
  Transmission Date: 20141002
  Serious: Yes (Other)
  Sender: FDA-Public Use
  Company Number: None

PATIENT
  Sex: Female
  Weight: 65.77 kg

DRUGS (1)
  1. MIRALAX [Suspect]
     Indication: CONSTIPATION

REACTIONS (7)
  - Local swelling [None]
  - Swollen tongue [None]
  - Erythema [None]
  - Pruritus [None]
  - Fear [None]
  - Pruritus [None]
  - Skin infection [None]
